FAERS Safety Report 7367123-9 (Version None)
Quarter: 2011Q1

REPORT INFORMATION
  Report Type: 
  Country: None (occurrence: None)
  Receive Date: 20110322
  Receipt Date: 20110315
  Transmission Date: 20110831
  Serious: Yes (Hospitalization, Other)
  Sender: FDA-Public Use
  Company Number: US-ABBOTT-11P-163-0704140-00

PATIENT
  Sex: Male
  Weight: 97.61 kg

DRUGS (5)
  1. IBUPROFEN [Concomitant]
     Indication: ARTHRALGIA
     Dosage: AT LEAST QOD, MAYBE 4 ONE DAY AND 2 THE NEXT
  2. TARKA [Suspect]
     Indication: HEART RATE IRREGULAR
     Dosage: 2/240MG DAILY
     Dates: start: 19970101, end: 20020101
  3. TARKA [Suspect]
     Indication: HYPERTENSION
     Dosage: 4/240MG DAILY
     Dates: start: 20020101
  4. UNKNOWN BLOOD PRESSURE DRUG [Suspect]
     Indication: HYPERTENSION
     Dates: end: 20100801
  5. PREVACID [Concomitant]
     Indication: GASTROOESOPHAGEAL REFLUX DISEASE

REACTIONS (13)
  - WHITE BLOOD CELL COUNT INCREASED [None]
  - GAIT DISTURBANCE [None]
  - NEPHROLITHIASIS [None]
  - ARTHRALGIA [None]
  - CHEST DISCOMFORT [None]
  - ANXIETY [None]
  - ASTHENIA [None]
  - FEELING ABNORMAL [None]
  - HOT FLUSH [None]
  - DEPRESSION [None]
  - CHRONIC LYMPHOCYTIC LEUKAEMIA [None]
  - FATIGUE [None]
  - RETCHING [None]
